FAERS Safety Report 12205323 (Version 4)
Quarter: 2016Q2

REPORT INFORMATION
  Report Type: Spontaneous
  Country: CZ (occurrence: CZ)
  Receive Date: 20160323
  Receipt Date: 20160415
  Transmission Date: 20160815
  Serious: Yes (Life-Threatening, Hospitalization, Other)
  Sender: FDA-Public Use
  Company Number: CZ-JNJFOC-20160316568

PATIENT
  Age: 4 Year
  Sex: Female

DRUGS (3)
  1. METOTREXATE [Suspect]
     Active Substance: METHOTREXATE SODIUM
     Indication: MEDULLOBLASTOMA
     Route: 065
  2. DOXORUBICIN HYDROCHLORIDE. [Suspect]
     Active Substance: DOXORUBICIN HYDROCHLORIDE
     Indication: MEDULLOBLASTOMA
     Dosage: 48 HR INFUSION
     Route: 042
  3. VINCRISTINE [Suspect]
     Active Substance: VINCRISTINE
     Indication: MEDULLOBLASTOMA
     Route: 048

REACTIONS (7)
  - Pancytopenia [Unknown]
  - Sepsis [Unknown]
  - Skin toxicity [Unknown]
  - Mucosal toxicity [Unknown]
  - Product use issue [Unknown]
  - Off label use [Unknown]
  - Haemodynamic instability [Unknown]
